FAERS Safety Report 13644855 (Version 1)
Quarter: 2017Q2

REPORT INFORMATION
  Report Type: Spontaneous
  Country: US (occurrence: US)
  Receive Date: 20170612
  Receipt Date: 20170612
  Transmission Date: 20170830
  Serious: No
  Sender: FDA-Public Use
  Company Number: US-ROCHE-1392657

PATIENT
  Sex: Male

DRUGS (1)
  1. XELODA [Suspect]
     Active Substance: CAPECITABINE
     Indication: PLASMA CELL MYELOMA
     Route: 065
     Dates: start: 201402, end: 201404

REACTIONS (2)
  - Neck pain [Unknown]
  - Back pain [Unknown]
